FAERS Safety Report 8283083-0 (Version None)
Quarter: 2012Q2

REPORT INFORMATION
  Report Type: 
  Country: None (occurrence: None)
  Receive Date: 20120413
  Receipt Date: 20120411
  Transmission Date: 20120825
  Serious: Yes (Other)
  Sender: FDA-Public Use
  Company Number: US-PFIZER INC-2012090859

PATIENT
  Sex: Male
  Weight: 135 kg

DRUGS (8)
  1. CHANTIX [Suspect]
     Dosage: 1 MG, 2X/DAY
     Route: 048
     Dates: end: 20120101
  2. LOSARTAN [Concomitant]
     Dosage: 50 MG, 1X/DAY
  3. TERAZOSIN [Concomitant]
     Dosage: 10 MG, 1X/DAY
  4. WARFARIN [Concomitant]
     Dosage: UNK
  5. CRESTOR [Concomitant]
     Dosage: 5 MG, UNK
  6. CARVEDILOL [Concomitant]
     Dosage: 12.5 MG, UNK
  7. SPIRONOLACTONE [Concomitant]
     Dosage: 25 MG, UNK
  8. CHANTIX [Suspect]
     Indication: SMOKING CESSATION THERAPY
     Dosage: 0.5 MG, 1X/DAY
     Route: 048
     Dates: start: 20110830

REACTIONS (7)
  - DRUG INEFFECTIVE [None]
  - AGITATION [None]
  - NAUSEA [None]
  - HYPERSOMNIA [None]
  - ANXIETY [None]
  - ABNORMAL DREAMS [None]
  - TOBACCO USER [None]
